FAERS Safety Report 8440540-1 (Version None)
Quarter: 2012Q2

REPORT INFORMATION
  Report Type: 
  Country: None (occurrence: None)
  Receive Date: 20120615
  Receipt Date: 20120611
  Transmission Date: 20120825
  Serious: Yes (Other)
  Sender: FDA-Public Use
  Company Number: US-PFIZER INC-2012069320

PATIENT
  Sex: Male
  Weight: 133.78 kg

DRUGS (4)
  1. BENEFIX [Suspect]
     Indication: FACTOR IX DEFICIENCY
     Dosage: 3000 IU, UNK
  2. BENEFIX [Suspect]
     Dosage: 3000 IU, 2X/DAY
  3. BENEFIX [Suspect]
     Dosage: 3000 IU, 2X/DAY
  4. BENEFIX [Suspect]
     Dosage: 6000 IU, 2X/DAY (FOR 3 DAYS)
     Dates: start: 20100101, end: 20100101

REACTIONS (3)
  - HAEMORRHAGE [None]
  - EPISTAXIS [None]
  - WEIGHT DECREASED [None]
